FAERS Safety Report 7108345-1 (Version None)
Quarter: 2010Q4

REPORT INFORMATION
  Report Type: 
  Country: None (occurrence: None)
  Receive Date: 20101115
  Receipt Date: 20101115
  Transmission Date: 20110411
  Serious: Yes (Other)
  Sender: FDA-Public Use
  Company Number: None

PATIENT
  Age: 63 Year
  Sex: Female
  Weight: 88.4514 kg

DRUGS (1)
  1. SIMVASTATIN [Suspect]
     Indication: BLOOD CHOLESTEROL INCREASED
     Dosage: 1 20 MG 1 PER DAY MOUTH
     Route: 048
     Dates: start: 20100518, end: 20100816

REACTIONS (3)
  - ARTHRALGIA [None]
  - BACK PAIN [None]
  - PAIN IN EXTREMITY [None]
